FAERS Safety Report 4589810-8 (Version None)
Quarter: 2005Q1

REPORT INFORMATION
  Report Type: 
  Country: None (occurrence: None)
  Receive Date: 20050223
  Receipt Date: 20050210
  Transmission Date: 20050727
  Serious: Yes (Hospitalization)
  Sender: FDA-Public Use
  Company Number: FR-GLAXOSMITHKLINE-B0372490A

PATIENT
  Age: 85 Year
  Sex: Female

DRUGS (2)
  1. LAMOTRIGINE [Suspect]
     Indication: EPILEPSY
     Route: 048
     Dates: start: 20041215, end: 20050101
  2. TRILEPTAL [Concomitant]
     Indication: EPILEPSY
     Route: 048

REACTIONS (9)
  - AGGRESSION [None]
  - CONFUSIONAL STATE [None]
  - DRUG INEFFECTIVE [None]
  - EPILEPSY [None]
  - INSOMNIA [None]
  - LOGORRHOEA [None]
  - MANIA [None]
  - PERSECUTORY DELUSION [None]
  - PSYCHOMOTOR HYPERACTIVITY [None]
